FAERS Safety Report 8530497-7 (Version None)
Quarter: 2012Q3

REPORT INFORMATION
  Report Type: 
  Country: None (occurrence: None)
  Receive Date: 20120723
  Receipt Date: 20120713
  Transmission Date: 20120928
  Serious: Yes (Hospitalization)
  Sender: FDA-Public Use
  Company Number: NL-BAYER-2012-066196

PATIENT
  Age: 85 Year
  Sex: Male

DRUGS (12)
  1. SORAFENIB (RAF KINASE INHIBITOR) [Suspect]
     Indication: METASTATIC RENAL CELL CARCINOMA
     Dosage: DAILY DOSE: 800  MG
     Dates: start: 20090924
  2. OMEPRAZOLE [Concomitant]
     Dosage: DAILY DOSE: 40 MG
  3. PREDNISONE TAB [Concomitant]
     Dosage: DAILY DOSE: 2.5 MG
     Dates: end: 20120614
  4. OMEPRAZOLE [Concomitant]
     Dosage: DAILY DOSE: 80 MG
  5. ACETAMINOPHEN [Concomitant]
     Dosage: 500 MG, PRN
  6. FUROSEMIDE [Concomitant]
     Dosage: 40 MG, OW
  7. FUROSEMIDE [Concomitant]
     Dosage: DAILY DOSE: 20 MG
     Route: 042
     Dates: start: 20120614, end: 20120614
  8. ACENOCOUMAROL [Concomitant]
     Dosage: UNK
     Dates: end: 20120614
  9. FUROSEMIDE [Concomitant]
     Dosage: 40 MG, BIW
  10. VALSARTAN [Concomitant]
     Dosage: DAILY DOSE: 160 MG
     Dates: end: 20120626
  11. NIFEDIPINE [Concomitant]
     Dosage: DAILY DOSE: 60 MG
  12. TINZAPARINE [Concomitant]
     Dosage: DAILY DOSE: 0.7 ML
     Dates: start: 20120619, end: 20120627

REACTIONS (4)
  - DUODENAL ULCER [None]
  - ANAEMIA [None]
  - CIRCULATORY COLLAPSE [None]
  - GASTROINTESTINAL HAEMORRHAGE [None]
